FAERS Safety Report 5163867-8 (Version None)
Quarter: 2006Q4

REPORT INFORMATION
  Report Type: 
  Country: None (occurrence: None)
  Receive Date: 20061204
  Receipt Date: 20030124
  Transmission Date: 20070319
  Serious: Yes (Hospitalization)
  Sender: FDA-Public Use
  Company Number: US-BRISTOL-MYERS SQUIBB COMPANY-12166138

PATIENT
  Age: 1 Month
  Sex: Female
  Weight: 3 kg

DRUGS (6)
  1. VIDEX [Suspect]
     Route: 064
     Dates: end: 20020827
  2. EPIVIR [Suspect]
     Route: 064
     Dates: end: 20020827
  3. VIRAMUNE [Suspect]
     Route: 064
     Dates: end: 20020827
  4. KALETRA [Suspect]
     Dosage: BABY RECEIVED TRANSPLACENTALLY, THEN ONE DOSE AT 48 HOURS
     Route: 064
     Dates: end: 20020827
  5. VIRAMUNE [Suspect]
     Dosage: BABY RECEIVED TRANSPLACENTALLY, THEN 1 DOSE AT 48 HOURS
     Route: 048
     Dates: start: 20020801, end: 20020801
  6. KALETRA [Suspect]
     Route: 048
     Dates: start: 20020801, end: 20020801

REACTIONS (3)
  - GASTROOESOPHAGEAL REFLUX DISEASE [None]
  - MALAISE [None]
  - PREGNANCY [None]
